FAERS Safety Report 5979142-5 (Version None)
Quarter: 2008Q4

REPORT INFORMATION
  Report Type: 
  Country: None (occurrence: None)
  Receive Date: 20081204
  Receipt Date: 20080326
  Transmission Date: 20090506
  Serious: No
  Sender: FDA-Public Use
  Company Number: US-ABBOTT-08P-163-0444059-00

PATIENT
  Sex: Female

DRUGS (1)
  1. TRICOR [Suspect]
     Indication: BLOOD TRIGLYCERIDES INCREASED
     Route: 048

REACTIONS (2)
  - PAIN IN EXTREMITY [None]
  - TENDERNESS [None]
